FAERS Safety Report 24917403 (Version 1)
Quarter: 2025Q1

REPORT INFORMATION
  Report Type: Spontaneous
  Country: US (occurrence: US)
  Receive Date: 20250203
  Receipt Date: 20250203
  Transmission Date: 20250409
  Serious: No
  Sender: AGIOS PHARMACEUTICALS
  Company Number: US-AGIOS-2501US04072

PATIENT

DRUGS (2)
  1. PYRUKYND [Suspect]
     Active Substance: MITAPIVAT
     Indication: Off label use
     Route: 065
  2. PYRUKYND [Suspect]
     Active Substance: MITAPIVAT
     Indication: Thalassaemia

REACTIONS (2)
  - Stress [Unknown]
  - Off label use [Unknown]
